FAERS Safety Report 5905703-5 (Version None)
Quarter: 2008Q4

REPORT INFORMATION
  Report Type: 
  Country: None (occurrence: None)
  Receive Date: 20081002
  Receipt Date: 20080923
  Transmission Date: 20090506
  Serious: Yes (Other)
  Sender: FDA-Public Use
  Company Number: US-BAYER-200813857BCC

PATIENT
  Age: 74 Year
  Sex: Male
  Weight: 76 kg

DRUGS (2)
  1. ASPIRIN [Suspect]
     Indication: VASCULAR GRAFT
     Dates: start: 19960101
  2. PLAVIX [Suspect]
     Indication: STENT PLACEMENT
     Dosage: TOTAL DAILY DOSE: 75 MG  UNIT DOSE: 75 MG
     Route: 048
     Dates: start: 20080201

REACTIONS (1)
  - EYE HAEMORRHAGE [None]
